FAERS Safety Report 20469165 (Version 1)
Quarter: 2022Q1

REPORT INFORMATION
  Report Type: Report from Study
  Country: US (occurrence: US)
  Receive Date: 20220214
  Receipt Date: 20220214
  Transmission Date: 20220423
  Serious: No
  Sender: FDA-Public Use
  Company Number: US-HRARD-2021000566

PATIENT
  Age: 70 Year
  Sex: Female

DRUGS (4)
  1. LYSODREN [Suspect]
     Active Substance: MITOTANE
     Dosage: 5 TABLETS BID
     Route: 048
     Dates: start: 20201008
  2. LYSODREN [Suspect]
     Active Substance: MITOTANE
     Route: 048
     Dates: start: 202011
  3. LYSODREN [Suspect]
     Active Substance: MITOTANE
     Route: 048
  4. LYSODREN [Suspect]
     Active Substance: MITOTANE
     Route: 048

REACTIONS (3)
  - Stomatitis [Recovering/Resolving]
  - Rash [Recovering/Resolving]
  - Nausea [Recovering/Resolving]
